FAERS Safety Report 9885925 (Version 1)
Quarter: 2013Q4

REPORT INFORMATION
  Report Type: Spontaneous
  Country: US (occurrence: None)
  Receive Date: 20131223
  Receipt Date: 20131223
  Transmission Date: 20140711
  Serious: Yes (Other)
  Sender: FDA-Public Use
  Company Number: 221765

PATIENT
  Age: 54 Year
  Sex: Female

DRUGS (2)
  1. PICATO (0.015 %, GEL) [Suspect]
     Indication: ACTINIC KERATOSIS
     Dosage: DERMAL
     Dates: start: 20130421, end: 20130423
  2. EFFEXOR (VENLAFAXINE) [Concomitant]

REACTIONS (2)
  - Application site swelling [None]
  - Swollen tongue [None]
